FAERS Safety Report 12151388 (Version 4)
Quarter: 2016Q4

REPORT INFORMATION
  Report Type: Report from Study
  Country: FR (occurrence: FR)
  Receive Date: 20160304
  Receipt Date: 20161214
  Transmission Date: 20170207
  Serious: Yes (Other)
  Sender: FDA-Public Use
  Company Number: FR-SEATTLE GENETICS-2015SGN01831

PATIENT

DRUGS (30)
  1. HYDROCORTISONE. [Concomitant]
     Active Substance: HYDROCORTISONE
     Route: 048
  2. PERMIXON [Concomitant]
     Active Substance: SAW PALMETTO
     Dosage: 120 MG, QD
     Route: 048
  3. BACTRIM [Concomitant]
     Active Substance: SULFAMETHOXAZOLE\TRIMETHOPRIM
     Dosage: 800 MG, UNK
     Route: 048
  4. BACTRIM [Concomitant]
     Active Substance: SULFAMETHOXAZOLE\TRIMETHOPRIM
     Dosage: 800 MG, UNK
     Route: 048
  5. ZANIDIP [Concomitant]
     Active Substance: LERCANIDIPINE HYDROCHLORIDE
     Dosage: 20 MG, QD
     Route: 048
  6. PERMIXON [Concomitant]
     Active Substance: SAW PALMETTO
     Indication: BENIGN PROSTATIC HYPERPLASIA
     Dosage: 10 MG, QD
     Route: 065
  7. BRENTUXIMAB VEDOTIN [Suspect]
     Active Substance: BRENTUXIMAB VEDOTIN
     Indication: T-CELL LYMPHOMA
     Dosage: UNK
     Route: 042
     Dates: start: 20120817, end: 20160704
  8. BACTRIM [Concomitant]
     Active Substance: SULFAMETHOXAZOLE\TRIMETHOPRIM
     Indication: PROPHYLAXIS
     Dosage: 800 MG, TID
     Route: 065
  9. BACTRIM [Concomitant]
     Active Substance: SULFAMETHOXAZOLE\TRIMETHOPRIM
     Dosage: 800 MG, UNK
     Route: 048
  10. ZELITREX [Concomitant]
     Active Substance: VALACYCLOVIR HYDROCHLORIDE
     Dosage: 1 G, QD
     Route: 048
  11. ZANIDIP [Concomitant]
     Active Substance: LERCANIDIPINE HYDROCHLORIDE
     Route: 048
  12. CRESTOR [Concomitant]
     Active Substance: ROSUVASTATIN CALCIUM
     Route: 048
  13. CRESTOR [Concomitant]
     Active Substance: ROSUVASTATIN CALCIUM
     Route: 048
  14. ZELITREX [Concomitant]
     Active Substance: VALACYCLOVIR HYDROCHLORIDE
     Indication: PROPHYLAXIS
     Dosage: 1 G, QD
     Route: 065
  15. CRESTOR [Concomitant]
     Active Substance: ROSUVASTATIN CALCIUM
     Route: 048
  16. FOLINORAL [Concomitant]
     Active Substance: LEUCOVORIN CALCIUM
     Route: 048
  17. FOLINORAL [Concomitant]
     Active Substance: LEUCOVORIN CALCIUM
     Route: 048
  18. PERMIXON [Concomitant]
     Active Substance: SAW PALMETTO
     Dosage: 120 MG, QD
     Route: 048
  19. ZELITREX [Concomitant]
     Active Substance: VALACYCLOVIR HYDROCHLORIDE
     Route: 048
  20. ZANIDIP [Concomitant]
     Active Substance: LERCANIDIPINE HYDROCHLORIDE
     Indication: HYPERTENSION
     Dosage: 20 MG, QD
     Route: 065
  21. FOLINORAL [Concomitant]
     Active Substance: LEUCOVORIN CALCIUM
     Indication: PROPHYLAXIS
     Dosage: UNK
     Route: 065
  22. FOLINORAL [Concomitant]
     Active Substance: LEUCOVORIN CALCIUM
     Dosage: UNK
     Route: 048
  23. HYDROCORTISONE. [Concomitant]
     Active Substance: HYDROCORTISONE
     Indication: MYCOSIS FUNGOIDES
     Dosage: 30 MG, QD
     Route: 065
  24. HYDROCORTISONE. [Concomitant]
     Active Substance: HYDROCORTISONE
     Dosage: 30 MG, QD
     Route: 048
  25. ZANIDIP [Concomitant]
     Active Substance: LERCANIDIPINE HYDROCHLORIDE
     Route: 048
  26. CRESTOR [Concomitant]
     Active Substance: ROSUVASTATIN CALCIUM
     Indication: HYPERCHOLESTEROLAEMIA
     Dosage: 5 MG, QD
     Route: 065
  27. ZELITREX [Concomitant]
     Active Substance: VALACYCLOVIR HYDROCHLORIDE
     Route: 048
  28. HYDROCORTISONE. [Concomitant]
     Active Substance: HYDROCORTISONE
     Indication: T-CELL LYMPHOMA
     Dosage: 30 MG, QD
     Route: 048
  29. PERMIXON [Concomitant]
     Active Substance: SAW PALMETTO
     Dosage: 120 MG, QD
  30. PERMIXON [Concomitant]
     Active Substance: SAW PALMETTO
     Dosage: 120 MG, QD
     Route: 048

REACTIONS (12)
  - Thrombocytopenia [Not Recovered/Not Resolved]
  - Neuropathy peripheral [Recovered/Resolved]
  - Myelodysplastic syndrome [Not Recovered/Not Resolved]
  - Off label use [Recovered/Resolved]
  - Orthostatic hypotension [Recovered/Resolved]
  - Dyspnoea [Recovered/Resolved]
  - Deep vein thrombosis [Recovered/Resolved]
  - Gamma-glutamyltransferase increased [Recovered/Resolved]
  - Thrombocytopenia [Not Recovered/Not Resolved]
  - Asthenia [Recovered/Resolved]
  - Transaminases increased [Recovered/Resolved]
  - Drug ineffective [Unknown]

NARRATIVE: CASE EVENT DATE: 20120817
